FAERS Safety Report 7101846-1 (Version None)
Quarter: 2010Q4

REPORT INFORMATION
  Report Type: 
  Country: None (occurrence: None)
  Receive Date: 20101115
  Receipt Date: 20101108
  Transmission Date: 20110411
  Serious: Yes (Other)
  Sender: FDA-Public Use
  Company Number: JP-PFIZER INC-2010134161

PATIENT
  Age: 81 Year
  Sex: Female

DRUGS (3)
  1. AZULFIDINE [Suspect]
     Dosage: UNK
     Route: 048
  2. BLOPRESS [Concomitant]
     Dosage: UNK
  3. SELBEX [Concomitant]
     Dosage: UNK

REACTIONS (1)
  - HIP SURGERY [None]
